FAERS Safety Report 4550131-0 (Version None)
Quarter: 2005Q1

REPORT INFORMATION
  Report Type: 
  Country: None (occurrence: None)
  Receive Date: 20050110
  Receipt Date: 20041228
  Transmission Date: 20050727
  Serious: Yes (Other)
  Sender: FDA-Public Use
  Company Number: 200416363BCC

PATIENT

DRUGS (2)
  1. ALEVE [Suspect]
     Indication: OSTEOARTHRITIS
  2. TYLENOL [Concomitant]

REACTIONS (4)
  - DRUG INEFFECTIVE [None]
  - INTERNATIONAL NORMALISED RATIO INCREASED [None]
  - POST PROCEDURAL COMPLICATION [None]
  - THROMBOSIS [None]
